FAERS Safety Report 16053872 (Version 1)
Quarter: 2019Q1

REPORT INFORMATION
  Report Type: Spontaneous
  Country: FR (occurrence: FR)
  Receive Date: 20190308
  Receipt Date: 20190308
  Transmission Date: 20190418
  Serious: Yes (Other)
  Sender: FDA-Public Use
  Company Number: FR-MYLANLABS-2019M1021563

PATIENT
  Age: 56 Year
  Sex: Female
  Weight: 55 kg

DRUGS (3)
  1. PIPERACILLIN AND TAZOBACTAM [Suspect]
     Active Substance: PIPERACILLIN SODIUM\TAZOBACTAM SODIUM
     Indication: INFECTION
     Dosage: 4 GRAM, TOTAL
     Route: 042
     Dates: start: 20180801, end: 20180801
  2. FUNGIZONE [Suspect]
     Active Substance: AMPHOTERICIN B
     Indication: INFECTION
     Dosage: 3,UNK QD
     Route: 048
     Dates: start: 20180718, end: 20180801
  3. AMIKACINE MYLAN [Suspect]
     Active Substance: AMIKACIN
     Indication: INFECTION
     Dosage: 1430 MILLIGRAM
     Route: 042
     Dates: start: 20180801, end: 20180801

REACTIONS (3)
  - Hypokalaemia [Recovered/Resolved]
  - Sinus tachycardia [Recovered/Resolved]
  - Hypomagnesaemia [Recovered/Resolved]

NARRATIVE: CASE EVENT DATE: 20180801
